FAERS Safety Report 18989570 (Version 2)
Quarter: 2021Q3

REPORT INFORMATION
  Report Type: Spontaneous
  Country: US (occurrence: US)
  Receive Date: 20210310
  Receipt Date: 20210930
  Transmission Date: 20211014
  Serious: No
  Sender: FDA-Public Use
  Company Number: US-SA-2021SA078652

PATIENT
  Age: 41 Year
  Sex: Female

DRUGS (1)
  1. DUPIXENT [Suspect]
     Active Substance: DUPILUMAB
     Indication: DERMATITIS ATOPIC
     Dosage: 300 MG,OTHER
     Route: 058
     Dates: start: 202102

REACTIONS (4)
  - Inappropriate schedule of product administration [Unknown]
  - Sensitive skin [Unknown]
  - Pain [Unknown]
  - Product dispensing issue [Unknown]

NARRATIVE: CASE EVENT DATE: 2021
